FAERS Safety Report 4845406-1 (Version None)
Quarter: 2005Q4

REPORT INFORMATION
  Report Type: 
  Country: None (occurrence: None)
  Receive Date: 20051125
  Receipt Date: 20051115
  Transmission Date: 20060501
  Serious: Yes (Other)
  Sender: FDA-Public Use
  Company Number: THQ2005A00958

PATIENT
  Age: 78 Year
  Sex: Male

DRUGS (2)
  1. PROCRIN DEPOT(LEUPROLIDE ACETATE) [Suspect]
     Indication: PROSTATIC ADENOMA
     Dosage: SUBCUTANEOUS
     Route: 058
     Dates: start: 20040517
  2. ANTICOAGULANT (ANTITHROMBOTIC AGENTS) [Concomitant]

REACTIONS (4)
  - ABSCESS [None]
  - HYPERSENSITIVITY [None]
  - RASH ERYTHEMATOUS [None]
  - SUBCUTANEOUS NODULE [None]
